FAERS Safety Report 20643708 (Version 1)
Quarter: 2022Q1

REPORT INFORMATION
  Report Type: Spontaneous
  Country: US (occurrence: None)
  Receive Date: 20220326
  Receipt Date: 20220326
  Transmission Date: 20220423
  Serious: No
  Sender: FDA-Public Use
  Company Number: None

PATIENT
  Age: 56 Year
  Sex: Female

DRUGS (1)
  1. NURTEC ODT [Suspect]
     Active Substance: RIMEGEPANT SULFATE
     Indication: Migraine
     Dosage: OTHER QUANTITY : 1 TABLET(S)?OTHER FREQUENCY : EVERY OTHER DAY?
     Route: 060
     Dates: start: 20211227

REACTIONS (3)
  - Speech disorder [None]
  - Glossodynia [None]
  - Swollen tongue [None]

NARRATIVE: CASE EVENT DATE: 20220310
